FAERS Safety Report 7227480-0 (Version None)
Quarter: 2011Q1

REPORT INFORMATION
  Report Type: 
  Country: None (occurrence: None)
  Receive Date: 20110105
  Receipt Date: 20101222
  Transmission Date: 20110831
  Serious: Yes (Hospitalization)
  Sender: FDA-Public Use
  Company Number: 024192

PATIENT
  Sex: Female

DRUGS (6)
  1. KEPPRA [Suspect]
     Indication: EPILEPSY
     Dosage: (250 MG BID ORAL)
     Route: 048
     Dates: start: 20101007, end: 20101011
  2. HEPT-A-MYL [Concomitant]
  3. PLAVIX [Concomitant]
  4. FENOFIBRATE [Concomitant]
  5. CACIT VITAMINE D3 /00944201/ [Concomitant]
  6. ETIOVEN [Concomitant]

REACTIONS (7)
  - ERYTHEMA [None]
  - SCRATCH [None]
  - RASH [None]
  - MALAISE [None]
  - DISTURBANCE IN ATTENTION [None]
  - EPILEPSY [None]
  - TREMOR [None]
